FAERS Safety Report 4285259-6 (Version None)
Quarter: 2004Q1

REPORT INFORMATION
  Report Type: 
  Country: None (occurrence: None)
  Receive Date: 20040202
  Receipt Date: 20040123
  Transmission Date: 20041129
  Serious: Yes (Hospitalization, Other)
  Sender: FDA-Public Use
  Company Number: USA-2002-0003250

PATIENT
  Age: 66 Year
  Sex: Male
  Weight: 90.7 kg

DRUGS (34)
  1. OXYCONTIN [Suspect]
     Indication: PAIN
     Dosage: SEE IMAGE
     Dates: start: 20000128, end: 20000303
  2. OXYCONTIN [Suspect]
     Indication: PAIN
     Dosage: SEE IMAGE
     Dates: start: 20000303
  3. OXYCONTIN [Suspect]
     Indication: PAIN
     Dosage: SEE IMAGE
     Dates: start: 20001116
  4. OXYCODONE HCL [Suspect]
     Indication: PAIN
     Dosage: 5 MG, ORAL
     Route: 048
     Dates: start: 20000323
  5. AXID [Concomitant]
  6. ZYRTEC [Concomitant]
  7. LAC-HYDRIN (AMMONIUM LACTATE) [Concomitant]
  8. CELEBREX [Concomitant]
  9. DOXEPIN HCL [Concomitant]
  10. PROMETHAZINE HYDROCHLORIDE WITH CODEINE (PROMETHAZINE HYDROCHLORIDE) [Concomitant]
  11. NORTRIPTYLINE HCL [Concomitant]
  12. CARDEC DM (CARBINOXAMINE MALEATE, DEXTROMETORPHAN HYDROBROMIDE, PSEUDO [Concomitant]
  13. PHENTOLAMINE (PHENTOLAMINE) [Concomitant]
  14. PHENTERMINE [Concomitant]
  15. IPRATROPIUM BROMIDE [Concomitant]
  16. XENICAL [Concomitant]
  17. XANAX [Concomitant]
  18. TIAZAC [Concomitant]
  19. CARDURA [Concomitant]
  20. LORCET-HD [Concomitant]
  21. FLONASE [Concomitant]
  22. VIOXX [Concomitant]
  23. ADIPEX-P [Concomitant]
  24. ROXICODONE [Concomitant]
  25. NEURONTIN [Concomitant]
  26. SOMA [Concomitant]
  27. CLARITIN [Concomitant]
  28. KLONOPIN [Concomitant]
  29. DALMANE [Concomitant]
  30. SONATA [Concomitant]
  31. VALIUM [Concomitant]
  32. ARTHROTEC (MISOPROSTOL, DICLOFENAC SODIUM) [Concomitant]
  33. PAXIL [Concomitant]
  34. UNIPHYL TABLETS [Concomitant]

REACTIONS (22)
  - BRONCHITIS ACUTE [None]
  - CARDIAC DISORDER [None]
  - DEPRESSION [None]
  - DIARRHOEA [None]
  - DIZZINESS [None]
  - DRUG DEPENDENCE [None]
  - DRUG INEFFECTIVE [None]
  - DRUG WITHDRAWAL SYNDROME [None]
  - HEADACHE [None]
  - HERNIA [None]
  - HYPERHIDROSIS [None]
  - HYPOACUSIS [None]
  - INSOMNIA [None]
  - IRRITABILITY [None]
  - NAUSEA [None]
  - NERVOUSNESS [None]
  - SINUSITIS [None]
  - TREATMENT NONCOMPLIANCE [None]
  - TREMOR [None]
  - VISION BLURRED [None]
  - VISUAL DISTURBANCE [None]
  - VOMITING [None]
